FAERS Safety Report 10234516 (Version 1)
Quarter: 2014Q2

REPORT INFORMATION
  Report Type: Spontaneous
  Country: IE (occurrence: IE)
  Receive Date: 20140613
  Receipt Date: 20140613
  Transmission Date: 20141212
  Serious: Yes (Death)
  Sender: FDA-Public Use
  Company Number: IE-AMGEN-IRLSP2014043180

PATIENT
  Age: 78 Year
  Sex: Female

DRUGS (8)
  1. ARANESP [Suspect]
     Indication: RENAL FAILURE CHRONIC
     Dosage: 30 MUG, Q2WK
     Route: 058
     Dates: start: 20120625
  2. LOSEC                              /00661201/ [Concomitant]
  3. DIOVAN [Concomitant]
  4. ASPIRIN [Concomitant]
  5. NOVOPEN                            /00000903/ [Concomitant]
  6. INSULIN [Concomitant]
  7. LIPITOR [Concomitant]
  8. CARDICOR [Concomitant]

REACTIONS (1)
  - Death [Fatal]
